FAERS Safety Report 5407979-X (Version None)
Quarter: 2007Q3

REPORT INFORMATION
  Report Type: 
  Country: None (occurrence: None)
  Receive Date: 20070803
  Receipt Date: 20070202
  Transmission Date: 20080115
  Serious: Yes (Hospitalization, Other)
  Sender: FDA-Public Use
  Company Number: 530#6#2007-00013

PATIENT

DRUGS (13)
  1. NEUPRO-PATCH-DOSE-UNKNOWN (ROTIGOTINE) [Suspect]
     Indication: PARKINSON'S DISEASE
     Dosage: 2 MG/24H (2 MG/24H 1 IN 1 DAY(S)) TRANSDERMAL; 4 MG/24H (4 MG/24H 1 IN 1 DAY(S)) TRANSDERMAL
     Route: 062
     Dates: start: 20061017, end: 20061023
  2. NEUPRO-PATCH-DOSE-UNKNOWN (ROTIGOTINE) [Suspect]
     Indication: PARKINSON'S DISEASE
     Dosage: 2 MG/24H (2 MG/24H 1 IN 1 DAY(S)) TRANSDERMAL; 4 MG/24H (4 MG/24H 1 IN 1 DAY(S)) TRANSDERMAL
     Route: 062
     Dates: start: 20061024, end: 20070122
  3. LEVODOPA 100MG, TABLETS (LEVODOPA) [Suspect]
     Indication: PARKINSON'S DISEASE
     Dosage: 300 MG (100 MG 3 IN 1 DAY (S)) ORAL
     Route: 048
     Dates: start: 20060915, end: 20061016
  4. STRIATON 200MG/CARBIDOPA 50MG, TABLETS (CARBIDOPA, LEVODOPA) [Suspect]
     Indication: PARKINSON'S DISEASE
     Dosage: 1 X 0.25 TABLETS PER DAY ORAL; 2 X 1/4 TABLET PER DAY ORAL; 3 X 0.5 TABLETS PER DAY ORAL
     Route: 048
     Dates: start: 20050718, end: 20050914
  5. STRIATON 200MG/CARBIDOPA 50MG, TABLETS (CARBIDOPA, LEVODOPA) [Suspect]
     Indication: PARKINSON'S DISEASE
     Dosage: 1 X 0.25 TABLETS PER DAY ORAL; 2 X 1/4 TABLET PER DAY ORAL; 3 X 0.5 TABLETS PER DAY ORAL
     Route: 048
     Dates: start: 20050915, end: 20061016
  6. STRIATON 200MG/CARBIDOPA 50MG, TABLETS (CARBIDOPA, LEVODOPA) [Suspect]
     Indication: PARKINSON'S DISEASE
     Dosage: 1 X 0.25 TABLETS PER DAY ORAL; 2 X 1/4 TABLET PER DAY ORAL; 3 X 0.5 TABLETS PER DAY ORAL
     Route: 048
     Dates: start: 20050317, end: 20070717
  7. L-THYROXIN 100MG, TABLETS (LEVOTHYROXINE SODIUM) [Concomitant]
  8. DICLOFENAC 50MG, TABLETS (DICLOFENAC) [Concomitant]
  9. DICLOFENAC 75MG, TABLETS (DICLOFENAC) [Concomitant]
  10. SILICUR 172MG, CAPSULES (SILYMARIN) [Concomitant]
  11. EDRONAX 4 MG, TABLETS (REBOXETINE) [Concomitant]
  12. TAVOR 0.5MG, TABLETS (LORAZEPAM) [Concomitant]
  13. TIMONIL SLOW RELEASE 150MG, TABLETS (CARBAMAZEPINE) [Concomitant]

REACTIONS (10)
  - DIARRHOEA [None]
  - DYSGEUSIA [None]
  - FEELING ABNORMAL [None]
  - HYPERSENSITIVITY [None]
  - ILL-DEFINED DISORDER [None]
  - MUSCLE SPASMS [None]
  - PAIN IN EXTREMITY [None]
  - PARAESTHESIA [None]
  - TACHYCARDIA [None]
  - UNEVALUABLE EVENT [None]
